FAERS Safety Report 12484304 (Version 1)
Quarter: 2016Q2

REPORT INFORMATION
  Report Type: Spontaneous
  Country: US (occurrence: US)
  Receive Date: 20160621
  Receipt Date: 20160621
  Transmission Date: 20160815
  Serious: Yes (Hospitalization)
  Sender: FDA-Public Use
  Company Number: US-SA-2016SA113808

PATIENT
  Sex: Male
  Weight: 3.03 kg

DRUGS (1)
  1. FABRAZYME [Suspect]
     Active Substance: AGALSIDASE BETA
     Route: 064

REACTIONS (3)
  - Exposure via father [Unknown]
  - Intestinal malrotation [Unknown]
  - Vomiting [Unknown]

NARRATIVE: CASE EVENT DATE: 2016
